FAERS Safety Report 11152226 (Version 2)
Quarter: 2015Q2

REPORT INFORMATION
  Report Type: Spontaneous
  Country: IE (occurrence: IE)
  Receive Date: 20150601
  Receipt Date: 20150616
  Transmission Date: 20150821
  Serious: No
  Sender: FDA-Public Use
  Company Number: IE-009507513-1505IRL000141

PATIENT
  Age: 74 Year
  Sex: Female

DRUGS (2)
  1. SINEMET [Suspect]
     Active Substance: CARBIDOPA\LEVODOPA
     Indication: PARKINSON^S DISEASE
     Dosage: DOSE: 2 TABLETS AT 9 AM, 1 TABLET AT NOON, 1 TABLET AT 3 PM, 1/2 TABLET AT 6 PM, 1 TABLET AT 9 PM
     Route: 048
     Dates: start: 201501
  2. SINEMET [Suspect]
     Active Substance: CARBIDOPA\LEVODOPA
     Dosage: 10/100 MGS THREE TIMES DAILY WITH FOUR HOURS INTERVALS
     Route: 048
     Dates: start: 2003

REACTIONS (4)
  - Tremor [Unknown]
  - Mobility decreased [Unknown]
  - Therapeutic response decreased [Unknown]
  - Freezing phenomenon [Unknown]
